FAERS Safety Report 10146566 (Version 1)
Quarter: 2014Q2

REPORT INFORMATION
  Report Type: Spontaneous
  Country: GB (occurrence: None)
  Receive Date: 20140429
  Receipt Date: 20140429
  Transmission Date: 20141212
  Serious: Yes (Hospitalization)
  Sender: FDA-Public Use
  Company Number: AUR-APL-2014-05076

PATIENT
  Age: 62 Year
  Sex: Male
  Weight: 100 kg

DRUGS (5)
  1. METFORMIN [Suspect]
     Indication: TYPE 2 DIABETES MELLITUS
     Dosage: STOPPED
  2. CANDESARTAN [Suspect]
     Indication: HYPERTENSION
     Dosage: STOPPED
  3. DICLOFENAC (DICLOFENAC) [Suspect]
     Indication: ARTHRALGIA
     Dosage: STOPPED
  4. NITROFURANTOIN [Suspect]
     Indication: URINARY TRACT INFECTION
  5. INSULIN (INSULIN) [Suspect]
     Indication: DIABETES MELLITUS

REACTIONS (9)
  - Renal failure acute [None]
  - Dyspnoea [None]
  - Abdominal discomfort [None]
  - Diarrhoea [None]
  - Joint swelling [None]
  - Blood sodium decreased [None]
  - Blood potassium increased [None]
  - Urinary tract infection [None]
  - Dehydration [None]
